FAERS Safety Report 5538377-6 (Version None)
Quarter: 2007Q4

REPORT INFORMATION
  Report Type: 
  Country: None (occurrence: None)
  Receive Date: 20071205
  Receipt Date: 20071120
  Transmission Date: 20080405
  Serious: Yes (Other)
  Sender: FDA-Public Use
  Company Number: S07-GER-05779-01

PATIENT
  Age: 67 Year
  Sex: Male
  Weight: 80 kg

DRUGS (6)
  1. ESCITALOPRAM [Suspect]
     Indication: DEPRESSION
     Dosage: 10 MG QD PO
     Route: 048
     Dates: start: 20070401, end: 20070704
  2. ESCITALOPRAM [Suspect]
     Indication: DEPRESSION
     Dosage: 10 MG QD PO
     Route: 048
     Dates: start: 20070915, end: 20071001
  3. CIPRALEX (ESICTALOPRAM) [Suspect]
     Indication: DEPRESSION
     Dosage: 5 MG QD PO
     Route: 048
     Dates: start: 20070911, end: 20070914
  4. THYRONAJOD [Concomitant]
  5. CONCOR (BISOPROLOL FUMARATE) [Concomitant]
  6. ESCITALOPRAM [Suspect]
     Indication: DEPRESSION
     Dosage: 10 MG QD PO
     Route: 048
     Dates: start: 20070915, end: 20071001

REACTIONS (7)
  - AGITATION [None]
  - ANXIETY [None]
  - BASAL CELL CARCINOMA [None]
  - HYPERHIDROSIS [None]
  - PRURITUS [None]
  - PSORIASIS [None]
  - VISION BLURRED [None]
